FAERS Safety Report 12272216 (Version 1)
Quarter: 2016Q2

REPORT INFORMATION
  Report Type: Report from Study
  Country: CA (occurrence: CA)
  Receive Date: 20160415
  Receipt Date: 20160415
  Transmission Date: 20160815
  Serious: Yes (Hospitalization)
  Sender: FDA-Public Use
  Company Number: CA-ABBVIE-16K-028-1534208-00

PATIENT
  Age: 53 Year
  Sex: Female

DRUGS (1)
  1. HUMIRA [Suspect]
     Active Substance: ADALIMUMAB
     Indication: CROHN^S DISEASE
     Dosage: LOADING DOSE
     Route: 058
     Dates: start: 20151221, end: 20151221

REACTIONS (4)
  - Enteritis [Unknown]
  - Fatigue [Unknown]
  - Crohn^s disease [Unknown]
  - Neuralgia [Unknown]

NARRATIVE: CASE EVENT DATE: 20151221
